FAERS Safety Report 16304922 (Version 1)
Quarter: 2019Q2

REPORT INFORMATION
  Report Type: Spontaneous
  Country: US (occurrence: US)
  Receive Date: 20190513
  Receipt Date: 20190513
  Transmission Date: 20190711
  Serious: Yes (Other)
  Sender: FDA-Public Use
  Company Number: US-PFIZER INC-2019194793

PATIENT
  Age: 83 Year
  Sex: Female
  Weight: 61 kg

DRUGS (1)
  1. FLECTOR [Suspect]
     Active Substance: DICLOFENAC EPOLAMINE
     Indication: ARTHRITIS
     Dosage: 1 DF, 2X/DAY
     Route: 061
     Dates: start: 2017

REACTIONS (4)
  - Cataract [Unknown]
  - Body height decreased [Unknown]
  - Off label use [Unknown]
  - Product use in unapproved indication [Unknown]

NARRATIVE: CASE EVENT DATE: 201901
